FAERS Safety Report 5172372-4 (Version None)
Quarter: 2006Q4

REPORT INFORMATION
  Report Type: 
  Country: None (occurrence: None)
  Receive Date: 20061213
  Receipt Date: 20061201
  Transmission Date: 20070319
  Serious: Yes (Life-Threatening, Hospitalization, Disabling, Other)
  Sender: FDA-Public Use
  Company Number: US-MERCK-0612USA00394

PATIENT
  Age: 16 Year
  Sex: Male

DRUGS (3)
  1. MAXALT [Suspect]
     Indication: HEADACHE
     Route: 065
     Dates: start: 20011028, end: 20011108
  2. TETRACYCLINE [Concomitant]
     Route: 065
  3. RETIN-A [Concomitant]
     Route: 065

REACTIONS (3)
  - BLOOD PRESSURE INCREASED [None]
  - CEREBRAL INFARCTION [None]
  - PRESCRIBED OVERDOSE [None]
